FAERS Safety Report 15319735 (Version 2)
Quarter: 2019Q2

REPORT INFORMATION
  Report Type: Spontaneous
  Country: NL (occurrence: NL)
  Receive Date: 20180827
  Receipt Date: 20190410
  Transmission Date: 20190711
  Serious: Yes (Hospitalization)
  Sender: FDA-Public Use
  Company Number: NL-ACTELION-A-CH2018-177956

PATIENT
  Sex: Female

DRUGS (2)
  1. OPSUMIT [Suspect]
     Active Substance: MACITENTAN
     Indication: PULMONARY ARTERIAL HYPERTENSION
     Dosage: 10 MG, OD
     Route: 048
     Dates: start: 20141018
  2. VELETRI [Suspect]
     Active Substance: EPOPROSTENOL
     Indication: SYSTEMIC LUPUS ERYTHEMATOSUS
     Dosage: 2500 UGL/24H
     Route: 042

REACTIONS (1)
  - Hospitalisation [Unknown]
